FAERS Safety Report 6880498-X (Version None)
Quarter: 2010Q3

REPORT INFORMATION
  Report Type: 
  Country: None (occurrence: None)
  Receive Date: 20100727
  Receipt Date: 20100715
  Transmission Date: 20110219
  Serious: Yes (Hospitalization)
  Sender: FDA-Public Use
  Company Number: A0871986A

PATIENT
  Sex: Female

DRUGS (2)
  1. SERETIDE [Suspect]
     Indication: BRONCHITIS
     Dosage: 1PUFF THREE TIMES PER DAY
     Route: 055
     Dates: start: 20070101
  2. AEROLIN [Concomitant]
     Dates: start: 20080101

REACTIONS (4)
  - APHTHOUS STOMATITIS [None]
  - DYSPHONIA [None]
  - OVERDOSE [None]
  - TONSILLITIS [None]
